FAERS Safety Report 21062221 (Version 3)
Quarter: 2022Q3

REPORT INFORMATION
  Report Type: Report from Study
  Country: FI (occurrence: FI)
  Receive Date: 20220711
  Receipt Date: 20220718
  Transmission Date: 20221027
  Serious: Yes (Hospitalization)
  Sender: FDA-Public Use
  Company Number: FI-NOVARTISPH-NVSC2022FI150783

PATIENT
  Age: 76 Year
  Sex: Female
  Weight: 75.1 kg

DRUGS (5)
  1. ALPELISIB [Suspect]
     Active Substance: ALPELISIB
     Indication: Ovarian cancer
     Dosage: 200 MG, QD (DAILY)
     Route: 048
     Dates: start: 20220215
  2. OLAPARIB [Suspect]
     Active Substance: OLAPARIB
     Indication: Ovarian cancer
     Dosage: 400 MG, BID (2 TIMES PER DAY)
     Route: 048
     Dates: start: 20220215
  3. CEFUROXIME [Concomitant]
     Active Substance: CEFUROXIME
     Indication: General physical health deterioration
     Dosage: UNK
     Route: 065
     Dates: start: 20220621, end: 20220623
  4. CEPHALEXIN [Concomitant]
     Active Substance: CEPHALEXIN
     Indication: General physical health deterioration
     Dosage: UNK
     Route: 065
     Dates: start: 20220623, end: 20220627
  5. PRIMPERAN [Concomitant]
     Active Substance: METOCLOPRAMIDE HYDROCHLORIDE
     Indication: Nausea
     Dosage: UNK
     Route: 065
     Dates: start: 20220218

REACTIONS (1)
  - Vomiting [Not Recovered/Not Resolved]

NARRATIVE: CASE EVENT DATE: 20220628
